FAERS Safety Report 22857140 (Version 5)
Quarter: 2023Q4

REPORT INFORMATION
  Report Type: Spontaneous
  Country: US (occurrence: US)
  Receive Date: 20230823
  Receipt Date: 20231129
  Transmission Date: 20240109
  Serious: Yes (Other)
  Sender: FDA-Public Use
  Company Number: US-Stemline Therapeutics, Inc.-2023ST000853

PATIENT
  Age: 56 Year
  Sex: Female

DRUGS (1)
  1. ORSERDU [Suspect]
     Active Substance: ELACESTRANT
     Indication: Product used for unknown indication
     Dosage: 345 MG ONCE DAILY
     Route: 048
     Dates: start: 20230509

REACTIONS (17)
  - Metastasis [Unknown]
  - Disease progression [Unknown]
  - Mass [Unknown]
  - Conjunctivitis [Unknown]
  - Nasopharyngitis [Unknown]
  - Dehydration [Unknown]
  - Dry eye [Unknown]
  - Pain in extremity [Unknown]
  - Product dose omission issue [Unknown]
  - Alopecia [Unknown]
  - Nail disorder [Unknown]
  - Blood iron decreased [Unknown]
  - Feeling cold [Unknown]
  - Illness [Unknown]
  - Carbohydrate antigen 15-3 increased [Unknown]
  - Fatigue [Unknown]
  - Vomiting [Unknown]
